FAERS Safety Report 16975793 (Version 12)
Quarter: 2021Q4

REPORT INFORMATION
  Report Type: Spontaneous
  Country: US (occurrence: US)
  Receive Date: 20191030
  Receipt Date: 20211111
  Transmission Date: 20220303
  Serious: No
  Sender: FDA-Public Use
  Company Number: US-PFIZER INC-2018381939

PATIENT
  Age: 57 Year
  Sex: Female
  Weight: 40.816 kg

DRUGS (4)
  1. LYRICA [Suspect]
     Active Substance: PREGABALIN
     Indication: Complex regional pain syndrome
     Dosage: UNK
     Route: 048
     Dates: end: 201904
  2. LYRICA [Suspect]
     Active Substance: PREGABALIN
     Dosage: 75 MG, 2X/DAY (2 TIMES EVERY DAY)
     Route: 048
  3. LYRICA [Suspect]
     Active Substance: PREGABALIN
     Dosage: 75 MG, 3X/DAY (3 TIMES EVERY DAY)
     Route: 048
  4. LYRICA [Suspect]
     Active Substance: PREGABALIN
     Dosage: 75 MG, 1X/DAY

REACTIONS (9)
  - Intentional product use issue [Unknown]
  - Off label use [Unknown]
  - Thoracic outlet syndrome [Unknown]
  - Arthralgia [Unknown]
  - Migraine [Unknown]
  - Pain in extremity [Unknown]
  - Somnolence [Unknown]
  - Dyspnoea [Unknown]
  - Loss of personal independence in daily activities [Unknown]

NARRATIVE: CASE EVENT DATE: 20190701
